FAERS Safety Report 5857779-1 (Version None)
Quarter: 2008Q3

REPORT INFORMATION
  Report Type: 
  Country: None (occurrence: None)
  Receive Date: 20080826
  Receipt Date: 20080821
  Transmission Date: 20090109
  Serious: Yes (Death)
  Sender: FDA-Public Use
  Company Number: ES-BRISTOL-MYERS SQUIBB COMPANY-14313951

PATIENT
  Age: 86 Year
  Sex: Female

DRUGS (5)
  1. METFORMIN HCL [Suspect]
     Indication: DIABETES MELLITUS
     Dosage: TOTAL DOSE:2550MG
  2. VALSARTAN [Concomitant]
  3. HYDROCHLOROTHIAZIDE [Concomitant]
  4. CLOPIDOGREL BISULFATE [Concomitant]
  5. NITRATES [Concomitant]
     Route: 061

REACTIONS (3)
  - HYPOGLYCAEMIA [None]
  - LACTIC ACIDOSIS [None]
  - RENAL FAILURE ACUTE [None]
